FAERS Safety Report 6397390-X (Version None)
Quarter: 2009Q4

REPORT INFORMATION
  Report Type: 
  Country: None (occurrence: None)
  Receive Date: 20091012
  Receipt Date: 20090929
  Transmission Date: 20100525
  Serious: Yes (Other)
  Sender: FDA-Public Use
  Company Number: PHHY2009AU42267

PATIENT
  Age: 73 Year
  Sex: Male

DRUGS (6)
  1. VOLTAREN [Suspect]
     Indication: BACK PAIN
     Dosage: 100 MG, QD
     Route: 054
     Dates: start: 20090916, end: 20090928
  2. AVAPRO [Concomitant]
     Dosage: 300/12.5 MG
  3. ATENOLOL [Concomitant]
     Dosage: 50 MG, QD
  4. NORVASC [Concomitant]
     Dosage: 10 MG, QD
  5. ZOCOR [Concomitant]
     Dosage: 20 MG, QD
  6. IBUPROFEN [Concomitant]
     Indication: BACK PAIN
     Dosage: UNK

REACTIONS (7)
  - ANAL FISSURE [None]
  - DIARRHOEA [None]
  - FEELING ABNORMAL [None]
  - FLATULENCE [None]
  - HAEMATOCHEZIA [None]
  - PROCTALGIA [None]
  - RECTAL HAEMORRHAGE [None]
